FAERS Safety Report 13486351 (Version 1)
Quarter: 2017Q2

REPORT INFORMATION
  Report Type: Not Available
  Country: US (occurrence: US)
  Receive Date: 20170426
  Receipt Date: 20170426
  Transmission Date: 20170830
  Serious: No
  Sender: FDA-Public Use
  Company Number: US-ECOLAB-2017-US-001281

PATIENT
  Age: 67 Year
  Sex: Female
  Weight: 70.31 kg

DRUGS (2)
  1. SCRUB-STAT [Suspect]
     Active Substance: CHLORHEXIDINE GLUCONATE
     Dosage: USED ONCE
     Route: 061
     Dates: start: 201609, end: 201609
  2. MEDICAL CANNABIS [Concomitant]
     Active Substance: CANNABIS SATIVA SUBSP. INDICA TOP

REACTIONS (2)
  - Application site erythema [Recovered/Resolved]
  - Application site pruritus [Recovered/Resolved]

NARRATIVE: CASE EVENT DATE: 201609
